FAERS Safety Report 17571290 (Version 1)
Quarter: 2020Q1

REPORT INFORMATION
  Report Type: Report from Study
  Country: US (occurrence: US)
  Receive Date: 20200323
  Receipt Date: 20200323
  Transmission Date: 20200409
  Serious: Yes (Hospitalization)
  Sender: FDA-Public Use
  Company Number: US-ROCHE-1382311

PATIENT
  Age: 55 Year
  Sex: Female
  Weight: 87.6 kg

DRUGS (84)
  1. RESVERATROL [Concomitant]
     Active Substance: DIETARY SUPPLEMENT\RESVERATROL
     Route: 065
     Dates: start: 2011, end: 20130110
  2. VITAMIN C [Concomitant]
     Active Substance: ASCORBIC ACID
     Route: 065
     Dates: start: 2002, end: 20131215
  3. CALCIUM CARBONATE. [Concomitant]
     Active Substance: CALCIUM CARBONATE
     Indication: SHOULDER ARTHROPLASTY
     Route: 065
     Dates: start: 20151123, end: 20151124
  4. CLARITIN [Concomitant]
     Active Substance: LORATADINE
     Indication: INFLUENZA LIKE ILLNESS
     Dosage: 1 TABLET
     Route: 065
     Dates: start: 20161216, end: 20161216
  5. DEXTROMETHORPHAN [Concomitant]
     Active Substance: DEXTROMETHORPHAN
     Indication: INFLUENZA LIKE ILLNESS
     Dosage: DATE OF TREATMENT: 08/APR/2016 AND 15/APR/2016
     Route: 065
     Dates: start: 20151008, end: 20160415
  6. ENOXAPARIN [Concomitant]
     Active Substance: ENOXAPARIN
     Indication: SHOULDER ARTHROPLASTY
     Route: 065
     Dates: start: 20151123, end: 20151124
  7. EPINEPHRINE. [Concomitant]
     Active Substance: EPINEPHRINE
     Route: 065
     Dates: start: 20151123, end: 20151123
  8. ETODOLAC. [Concomitant]
     Active Substance: ETODOLAC
     Route: 065
     Dates: start: 20151221, end: 20160125
  9. GLUCAGON. [Concomitant]
     Active Substance: GLUCAGON
     Route: 065
     Dates: start: 20151123, end: 20151123
  10. PROMETHAZINE [Concomitant]
     Active Substance: PROMETHAZINE HYDROCHLORIDE
     Route: 065
     Dates: start: 20151123, end: 20151123
  11. GABAPENTIN. [Concomitant]
     Active Substance: GABAPENTIN
     Indication: PAIN
     Route: 065
     Dates: start: 2008, end: 20121215
  12. LODINE [Concomitant]
     Active Substance: ETODOLAC
     Indication: PAIN
     Dosage: ONE TABLET THREE TIMES A DAY WITH FOOD WHEN NEEDED.
     Route: 048
     Dates: start: 2004
  13. TRAMADOL. [Concomitant]
     Active Substance: TRAMADOL
     Indication: PAIN
     Route: 065
     Dates: start: 2011
  14. CHLORHEXIDINE GLUCONATE. [Concomitant]
     Active Substance: CHLORHEXIDINE GLUCONATE
     Route: 065
     Dates: start: 20151123, end: 20151124
  15. UBIDECARENONE [Concomitant]
     Active Substance: UBIDECARENONE
     Route: 065
     Dates: start: 2002, end: 20140525
  16. KENALOG [Concomitant]
     Active Substance: TRIAMCINOLONE ACETONIDE
     Indication: ARTHRALGIA
     Route: 065
     Dates: start: 20160115, end: 20160115
  17. MAGNESIUM HYDROXIDE. [Concomitant]
     Active Substance: MAGNESIUM HYDROXIDE
     Route: 065
     Dates: start: 20151123, end: 20151123
  18. MELATONIN [Concomitant]
     Active Substance: MELATONIN
     Indication: INSOMNIA
     Route: 065
     Dates: start: 20160422
  19. MIDAZOLAM. [Concomitant]
     Active Substance: MIDAZOLAM
     Route: 065
     Dates: start: 20190116, end: 20190116
  20. OXYCODONE [Concomitant]
     Active Substance: OXYCODONE
     Route: 065
     Dates: start: 20151123, end: 20151124
  21. PERCOCET [Concomitant]
     Active Substance: ACETAMINOPHEN\OXYCODONE HYDROCHLORIDE
     Route: 065
     Dates: start: 20151216, end: 20190125
  22. PROCHLORPERAZINE MALEATE. [Concomitant]
     Active Substance: PROCHLORPERAZINE MALEATE
     Route: 065
     Dates: start: 20151123, end: 20151124
  23. TRAMADOL. [Concomitant]
     Active Substance: TRAMADOL
     Route: 065
     Dates: start: 20160317, end: 20160323
  24. TRAMADOL. [Concomitant]
     Active Substance: TRAMADOL
     Route: 065
     Dates: start: 20160324
  25. METHYLPREDNISOLONE. [Concomitant]
     Active Substance: METHYLPREDNISOLONE
     Indication: PREMEDICATION
     Dosage: ADMINISTERED 14 DAYS APART, EVERY 24 WEEKS.
     Route: 065
     Dates: start: 20121221
  26. FISH OIL [Concomitant]
     Active Substance: FISH OIL
     Route: 065
     Dates: start: 2007
  27. FLEXERIL [Concomitant]
     Active Substance: CYCLOBENZAPRINE HYDROCHLORIDE
     Indication: PAIN
     Dosage: AT BED TIME
     Route: 048
     Dates: start: 2006
  28. ASPIRIN [ACETYLSALICYLIC ACID] [Concomitant]
     Active Substance: ASPIRIN
     Route: 065
     Dates: start: 20151209, end: 20151221
  29. UBIDECARENONE [Concomitant]
     Active Substance: UBIDECARENONE
     Route: 065
     Dates: start: 20150528
  30. CORTISONE [Concomitant]
     Active Substance: CORTISONE
     Indication: ARTHRALGIA
     Route: 065
     Dates: start: 20190502, end: 20190502
  31. GABAPENTIN. [Concomitant]
     Active Substance: GABAPENTIN
     Indication: LUMBAR RADICULOPATHY
     Route: 065
     Dates: start: 20170424
  32. GENTAMICIN. [Concomitant]
     Active Substance: GENTAMICIN
     Route: 065
     Dates: start: 20190116, end: 20190116
  33. MEPERIDINE [PETHIDINE] [Concomitant]
     Active Substance: MEPERIDINE
     Route: 065
     Dates: start: 20151123, end: 20151123
  34. MORPHINE [Concomitant]
     Active Substance: MORPHINE
     Route: 065
     Dates: start: 20151123, end: 20151123
  35. ONDANSETRON [Concomitant]
     Active Substance: ONDANSETRON
     Route: 065
     Dates: start: 20151123, end: 20151123
  36. TIZANIDINE. [Concomitant]
     Active Substance: TIZANIDINE
     Route: 065
     Dates: start: 20160325, end: 20180920
  37. FLAXSEED OIL [LINUM USITATISSIMUM SEED OIL] [Concomitant]
     Active Substance: HERBALS\LINSEED OIL
     Indication: NUTRITIONAL SUPPLEMENTATION
     Dosage: 1 CAPSULE
     Route: 065
     Dates: start: 20150219
  38. CEPACOL [BENZOCAINE] [Concomitant]
     Route: 065
     Dates: start: 20151123, end: 20151123
  39. UBIDECARENONE [Concomitant]
     Active Substance: UBIDECARENONE
     Route: 065
     Dates: start: 20140526, end: 20140601
  40. NABUMETONE. [Concomitant]
     Active Substance: NABUMETONE
     Route: 065
     Dates: start: 20160125, end: 20181213
  41. PEPCID [Concomitant]
     Active Substance: FAMOTIDINE
     Route: 065
     Dates: start: 20190116, end: 20190116
  42. PHENYLEPHRINE [Concomitant]
     Active Substance: PHENYLEPHRINE HYDROCHLORIDE
     Route: 065
     Dates: start: 20151008, end: 20151008
  43. OCRELIZUMAB. [Suspect]
     Active Substance: OCRELIZUMAB
     Indication: PRIMARY PROGRESSIVE MULTIPLE SCLEROSIS
     Dosage: RECEIVED INFUSION ON 04/JAN/2013, 07/JUN/2013 AND 14/NOV/2013. LAST DOSE PRIOR TO ISCHEMIC COLITIS W
     Route: 042
     Dates: start: 20121221
  44. HYDROCHLOROTHIAZIDE. [Concomitant]
     Active Substance: HYDROCHLOROTHIAZIDE
     Indication: HYPERTENSION
     Route: 048
     Dates: start: 2002
  45. LISINOPRIL. [Concomitant]
     Active Substance: LISINOPRIL
     Indication: HYPERTENSION
     Route: 048
     Dates: start: 2002
  46. ZANTAC [Concomitant]
     Active Substance: RANITIDINE HYDROCHLORIDE
     Indication: GASTROOESOPHAGEAL REFLUX DISEASE
     Dosage: ONE TABLET TWICE DAILY AS NEEDED.
     Route: 048
     Dates: start: 2004
  47. ASPIRIN [ACETYLSALICYLIC ACID] [Concomitant]
     Active Substance: ASPIRIN
     Indication: SHOULDER ARTHROPLASTY
     Route: 065
     Dates: start: 20151124, end: 20151208
  48. BUPIVACAINE. [Concomitant]
     Active Substance: BUPIVACAINE
     Route: 065
     Dates: start: 20151123, end: 20151123
  49. CARBAMAZEPINE. [Concomitant]
     Active Substance: CARBAMAZEPINE
     Indication: TRIGEMINAL NEURALGIA
     Route: 065
     Dates: start: 20190906, end: 20190914
  50. CARBAMAZEPINE. [Concomitant]
     Active Substance: CARBAMAZEPINE
     Route: 065
     Dates: start: 20190915, end: 20191009
  51. CHLORHEXIDINE [Concomitant]
     Active Substance: CHLORHEXIDINE
     Route: 065
     Dates: start: 20190116, end: 20190116
  52. DELSYM [Concomitant]
     Active Substance: DEXTROMETHORPHAN
     Route: 065
     Dates: start: 20161215, end: 20161216
  53. LIDOCAINE. [Concomitant]
     Active Substance: LIDOCAINE
     Indication: ARTHRALGIA
     Route: 065
     Dates: start: 20160115, end: 20160115
  54. LIDOCAINE. [Concomitant]
     Active Substance: LIDOCAINE
     Indication: OSTEOARTHRITIS
     Route: 065
     Dates: start: 20190116, end: 20190116
  55. LIDOCAINE. [Concomitant]
     Active Substance: LIDOCAINE
     Indication: ARTHRITIS
     Route: 065
     Dates: start: 20180221, end: 20180221
  56. ANTACIDS, OTHER COMBINATIONS [Concomitant]
     Active Substance: ANTACIDS NOS
     Route: 065
     Dates: start: 20151123, end: 20151124
  57. VANCOMYCIN [Concomitant]
     Active Substance: VANCOMYCIN
     Route: 065
     Dates: start: 20151123, end: 20151124
  58. VITAMIN C [Concomitant]
     Active Substance: ASCORBIC ACID
     Route: 065
     Dates: start: 20131216
  59. ASA [Concomitant]
     Active Substance: ASPIRIN
     Dosage: BABY ASA.
     Route: 065
  60. DIPHENHYDRAMINE. [Concomitant]
     Active Substance: DIPHENHYDRAMINE
     Indication: PREMEDICATION
     Dosage: ADMINISTERED  14 DAYS APART, EVERY 24 WEEKS.
     Route: 065
     Dates: start: 20121221
  61. CEFAZOLIN [Concomitant]
     Active Substance: CEFAZOLIN
     Route: 065
     Dates: start: 20190116, end: 20190116
  62. FENTANYL. [Concomitant]
     Active Substance: FENTANYL
     Route: 065
     Dates: start: 20190116, end: 20190116
  63. MIDAZOLAM. [Concomitant]
     Active Substance: MIDAZOLAM
     Route: 065
     Dates: start: 20151123, end: 20151123
  64. NALBUPHINE [Concomitant]
     Active Substance: NALBUPHINE
     Route: 065
     Dates: start: 20151123, end: 20151123
  65. NALOXONE [Concomitant]
     Active Substance: NALOXONE
     Route: 065
     Dates: start: 20151123, end: 20151123
  66. TRAMADOL. [Concomitant]
     Active Substance: TRAMADOL
     Route: 065
     Dates: start: 2011
  67. OCRELIZUMAB. [Suspect]
     Active Substance: OCRELIZUMAB
     Indication: PRIMARY PROGRESSIVE MULTIPLE SCLEROSIS
     Dosage: SUBSEQUENT INFUSIONS: 28/MAR/2016, 29/AUG/2016, 12/SEP/2016, 13/FEB/2017, 27/FEB/2017, 15/AUG/2017,
     Route: 042
     Dates: start: 20160314
  68. ACETAMINOPHEN. [Concomitant]
     Active Substance: ACETAMINOPHEN
     Indication: PREMEDICATION
     Dosage: ADMINISTERED  14 DAYS APART, EVERY 24 WEEKS.
     Route: 065
     Dates: start: 20121221
  69. TYLENOL [Concomitant]
     Active Substance: ACETAMINOPHEN
     Indication: INFUSION RELATED REACTION
     Route: 065
     Dates: start: 20150413, end: 20150413
  70. DOCUSATE [Concomitant]
     Active Substance: DOCUSATE
     Route: 065
     Dates: start: 20151124, end: 20151130
  71. FENTANYL. [Concomitant]
     Active Substance: FENTANYL
     Route: 065
     Dates: start: 20151123, end: 20151123
  72. LIDOCAINE. [Concomitant]
     Active Substance: LIDOCAINE
     Indication: ARTHRALGIA
     Route: 065
     Dates: start: 20150825, end: 20150825
  73. LIDOCAINE. [Concomitant]
     Active Substance: LIDOCAINE
     Route: 065
     Dates: start: 20180828, end: 20180828
  74. OXYCODONE [Concomitant]
     Active Substance: OXYCODONE
     Route: 065
     Dates: start: 20151123, end: 20151124
  75. TRAMADOL. [Concomitant]
     Active Substance: TRAMADOL
     Route: 065
     Dates: start: 20160311, end: 20160316
  76. VANCOMYCIN [Concomitant]
     Active Substance: VANCOMYCIN
     Route: 065
     Dates: start: 20151123, end: 20151123
  77. ACYCLOVIR [ACICLOVIR] [Concomitant]
     Active Substance: ACYCLOVIR
     Indication: ORAL HERPES
     Dosage: ONE TABLET THREE TIMES DAY FOR ONE WEEK WHEN NEEDED.
     Route: 048
     Dates: start: 1992
  78. TRAMADOL. [Concomitant]
     Active Substance: TRAMADOL
     Dosage: ONE TO TWO EVERY SIX HOURS WHEN NEEDED.
     Route: 048
  79. CEPHALEXIN [CEFALEXIN] [Concomitant]
     Active Substance: CEPHALEXIN
     Dosage: 2 TABLET
     Route: 065
     Dates: start: 20190116, end: 20190122
  80. KENALOG [Concomitant]
     Active Substance: TRIAMCINOLONE ACETONIDE
     Indication: OSTEOARTHRITIS
     Route: 065
     Dates: start: 20150825, end: 20150825
  81. NABUMETONE. [Concomitant]
     Active Substance: NABUMETONE
     Indication: PAIN
     Route: 065
     Dates: start: 20181214
  82. ROXICODONE [Concomitant]
     Active Substance: OXYCODONE HYDROCHLORIDE
     Route: 065
     Dates: start: 20151124, end: 20151208
  83. TIZANIDINE. [Concomitant]
     Active Substance: TIZANIDINE
     Route: 065
     Dates: start: 20180921
  84. VANCOMYCIN [Concomitant]
     Active Substance: VANCOMYCIN
     Route: 065
     Dates: start: 20190116, end: 20190116

REACTIONS (1)
  - Colitis ischaemic [Recovered/Resolved]

NARRATIVE: CASE EVENT DATE: 20140404
